FAERS Safety Report 9481572 (Version 1)
Quarter: 2013Q3

REPORT INFORMATION
  Report Type: Spontaneous
  Country: US (occurrence: US)
  Receive Date: 20130828
  Receipt Date: 20130828
  Transmission Date: 20140515
  Serious: Yes (Hospitalization)
  Sender: FDA-Public Use
  Company Number: US-AMGEN-KDL177547

PATIENT
  Age: 32 Year
  Sex: Female

DRUGS (1)
  1. ENBREL [Suspect]
     Indication: PSORIASIS
     Dosage: 100 MG, QWK
     Route: 058
     Dates: start: 20050416

REACTIONS (4)
  - Pneumonia [Unknown]
  - Blood glucose increased [Unknown]
  - Pain of skin [Not Recovered/Not Resolved]
  - Injection site pain [Not Recovered/Not Resolved]
